FAERS Safety Report 9579407 (Version 1)
Quarter: 2013Q4

REPORT INFORMATION
  Report Type: Spontaneous
  Country: US (occurrence: US)
  Receive Date: 20131001
  Receipt Date: 20131001
  Transmission Date: 20140711
  Serious: No
  Sender: FDA-Public Use
  Company Number: US-AMGEN-USASP2013017727

PATIENT
  Age: 53 Year
  Sex: Female
  Weight: 66 kg

DRUGS (8)
  1. ENBREL [Suspect]
     Indication: PSORIASIS
     Dosage: 50 MG, QWK
     Route: 058
  2. BABY ASPIRIN [Concomitant]
     Dosage: 81 MG, UNK
  3. BIOTIN [Concomitant]
     Dosage: 10 MG, UNK
  4. METOPROLOL TARTRATE [Concomitant]
     Dosage: 50 MG, UNK
  5. PROZAC [Concomitant]
     Dosage: 10 MG, UNK
  6. PROGESTERONE [Concomitant]
     Dosage: 100 MG, UNK
  7. ESTRADIOL [Concomitant]
     Dosage: 0.5 MG, UNK
  8. MULTIVITAMINS, PLAIN [Concomitant]
     Dosage: UNK

REACTIONS (3)
  - Psoriasis [Unknown]
  - Nausea [Unknown]
  - Stress [Unknown]
